FAERS Safety Report 7890103-1 (Version None)
Quarter: 2011Q4

REPORT INFORMATION
  Report Type: 
  Country: None (occurrence: None)
  Receive Date: 20111103
  Receipt Date: 20111031
  Transmission Date: 20120403
  Serious: Yes (Hospitalization)
  Sender: FDA-Public Use
  Company Number: US-ABBOTT-11P-163-0856147-00

PATIENT
  Sex: Male

DRUGS (5)
  1. PEG-RIL-29 (BMS914143-INVESTIGATIONAL) [Suspect]
     Indication: HEPATITIS C
     Dates: start: 20100820
  2. TESTOSTERONE [Concomitant]
     Indication: PRODUCT USED FOR UNKNOWN INDICATION
     Dates: start: 20050101
  3. VICOPROFEN [Suspect]
     Indication: PRODUCT USED FOR UNKNOWN INDICATION
     Dates: start: 20050101, end: 20100925
  4. RIBAVIRIN [Suspect]
     Indication: HEPATITIS C
     Dates: start: 20100820
  5. PEGINTERFERON ALFA-2A [Suspect]
     Indication: HEPATITIS C
     Dates: start: 20100820

REACTIONS (5)
  - COLITIS [None]
  - SMALL INTESTINAL HAEMORRHAGE [None]
  - CONSTIPATION [None]
  - ANXIETY [None]
  - ANAEMIA [None]
